FAERS Safety Report 5232369-2 (Version None)
Quarter: 2007Q1

REPORT INFORMATION
  Report Type: 
  Country: None (occurrence: None)
  Receive Date: 20070207
  Receipt Date: 20070126
  Transmission Date: 20070707
  Serious: Yes (Hospitalization)
  Sender: FDA-Public Use
  Company Number: US-AMGEN-US208778

PATIENT
  Sex: Female

DRUGS (1)
  1. ENBREL [Suspect]
     Indication: RHEUMATOID ARTHRITIS
     Route: 058
     Dates: start: 20031001

REACTIONS (4)
  - CROHN'S DISEASE [None]
  - INJECTION SITE DISCOMFORT [None]
  - JOINT SWELLING [None]
  - OEDEMA PERIPHERAL [None]
